FAERS Safety Report 8477042-2 (Version None)
Quarter: 2012Q2

REPORT INFORMATION
  Report Type: 
  Country: None (occurrence: None)
  Receive Date: 20120629
  Receipt Date: 20120521
  Transmission Date: 20120825
  Serious: Yes (Other)
  Sender: FDA-Public Use
  Company Number: ES-RANBAXY-2012RR-56415

PATIENT
  Age: 55 Year
  Sex: Male

DRUGS (4)
  1. DIAZEPAM [Suspect]
     Indication: SCHIZOPHRENIA
     Dosage: 10 MG/DAY
     Route: 065
  2. OLANZAPINE [Suspect]
     Indication: SCHIZOPHRENIA
     Dosage: 15 MG/DAY
     Route: 065
  3. RISPERIDONE [Concomitant]
     Indication: SCHIZOPHRENIA
     Dosage: 6 MG/DAY
     Route: 065
  4. FLUOXETINE [Suspect]
     Indication: SCHIZOPHRENIA
     Dosage: 20 MG/DAY
     Route: 065

REACTIONS (1)
  - RASH [None]
